FAERS Safety Report 20839071 (Version 1)
Quarter: 2022Q2

REPORT INFORMATION
  Report Type: Report from Study
  Country: US (occurrence: US)
  Receive Date: 20220517
  Receipt Date: 20220517
  Transmission Date: 20220721
  Serious: Yes (Hospitalization)
  Sender: FDA-Public Use
  Company Number: US-ABBVIE-22K-163-4395045-00

PATIENT
  Sex: Female

DRUGS (2)
  1. HUMIRA [Suspect]
     Active Substance: ADALIMUMAB
     Indication: Psoriatic arthropathy
     Route: 058
  2. IRON [Concomitant]
     Active Substance: IRON
     Indication: Product used for unknown indication
     Route: 065

REACTIONS (7)
  - Gastrointestinal disorder [Unknown]
  - Intussusception [Unknown]
  - Rectal abscess [Unknown]
  - Anal fistula [Unknown]
  - Injection site vesicles [Recovered/Resolved]
  - Blood potassium decreased [Unknown]
  - Sensory disturbance [Unknown]
